FAERS Safety Report 6676775-8 (Version None)
Quarter: 2010Q2

REPORT INFORMATION
  Report Type: 
  Country: None (occurrence: None)
  Receive Date: 20100408
  Receipt Date: 20100330
  Transmission Date: 20101027
  Serious: Yes (Hospitalization)
  Sender: FDA-Public Use
  Company Number: 2010SP019159

PATIENT
  Age: 44 Year
  Sex: Female
  Weight: 61.2356 kg

DRUGS (2)
  1. PEG-INTRON [Suspect]
     Indication: HEPATITIS C
     Dosage: SC
     Route: 058
     Dates: start: 20100223
  2. RIBAVIRIN [Suspect]
     Indication: HEPATITIS C
     Dosage: PO
     Route: 048
     Dates: start: 20100223

REACTIONS (18)
  - ARTHRALGIA [None]
  - BLOOD GLUCOSE INCREASED [None]
  - DECREASED APPETITE [None]
  - DEPRESSION [None]
  - FATIGUE [None]
  - GENERALISED OEDEMA [None]
  - HEART RATE INCREASED [None]
  - IMMUNOSUPPRESSION [None]
  - INJECTION SITE ERYTHEMA [None]
  - INSOMNIA [None]
  - LARYNGITIS [None]
  - MYALGIA [None]
  - NASOPHARYNGITIS [None]
  - NERVOUSNESS [None]
  - PANIC ATTACK [None]
  - RASH [None]
  - RED BLOOD CELL COUNT DECREASED [None]
  - WHITE BLOOD CELL COUNT DECREASED [None]
